FAERS Safety Report 22063679 (Version 1)
Quarter: 2023Q1

REPORT INFORMATION
  Report Type: Spontaneous
  Country: US (occurrence: US)
  Receive Date: 20230306
  Receipt Date: 20230306
  Transmission Date: 20230418
  Serious: No
  Sender: FDA-Public Use
  Company Number: US-PADAGIS-2023PAD00175

PATIENT

DRUGS (1)
  1. PROCTO-MED HC [Suspect]
     Active Substance: HYDROCORTISONE
     Indication: Haemorrhoids
     Dosage: UNK, (2-4 TIMES A DAY)
     Route: 061
     Dates: end: 20230207

REACTIONS (2)
  - Drug ineffective for unapproved indication [Unknown]
  - Product physical consistency issue [Unknown]
